FAERS Safety Report 9302079 (Version 1)
Quarter: 2013Q2

REPORT INFORMATION
  Report Type: Spontaneous
  Country: GB (occurrence: GB)
  Receive Date: 20130521
  Receipt Date: 20130521
  Transmission Date: 20140414
  Serious: Yes (Life-Threatening, Other)
  Sender: FDA-Public Use
  Company Number: GB-B.I. PHARMACEUTICALS,INC./RIDGEFIELD-2013-UK-01115UK

PATIENT
  Age: 88 Year
  Sex: Female

DRUGS (8)
  1. PRADAXA [Suspect]
     Indication: ATRIAL FIBRILLATION
     Dosage: 220 MG
     Route: 048
     Dates: start: 20130415, end: 20130429
  2. DIGOXIN [Concomitant]
     Dosage: 125 MCG
     Route: 048
  3. FELODIPINE [Concomitant]
     Dosage: 5 MG
     Route: 048
  4. FERROUS SULPHATE [Concomitant]
     Dosage: 200 MG
     Route: 048
  5. FUROSEMIDE [Concomitant]
     Dosage: 80 MG
     Route: 048
  6. PERINDOPRIL ERBUMINE [Concomitant]
     Dosage: 8 MG
     Route: 048
  7. SIMVASTATIN [Concomitant]
     Dosage: 40 MG
     Route: 048
  8. SPIRONOLACTONE [Concomitant]
     Dosage: 25 MG
     Route: 048

REACTIONS (3)
  - Rectal haemorrhage [Recovered/Resolved]
  - Dehydration [Unknown]
  - Diarrhoea [Unknown]
